FAERS Safety Report 16383794 (Version 2)
Quarter: 2019Q2

REPORT INFORMATION
  Report Type: Spontaneous
  Country: US (occurrence: US)
  Receive Date: 20190603
  Receipt Date: 20190624
  Transmission Date: 20190711
  Serious: Yes (Other)
  Sender: FDA-Public Use
  Company Number: US-SA-2019SA149015

PATIENT
  Age: 30 Year
  Sex: Female

DRUGS (7)
  1. NAPROXEN. [Concomitant]
     Active Substance: NAPROXEN
  2. WELLBUTRIN [Concomitant]
     Active Substance: BUPROPION HYDROCHLORIDE
  3. TYLENOL [Concomitant]
     Active Substance: ACETAMINOPHEN
  4. AUBAGIO [Suspect]
     Active Substance: TERIFLUNOMIDE
     Indication: MULTIPLE SCLEROSIS
     Dosage: 14 MG, QD
     Route: 048
     Dates: start: 20180725
  5. IBUPROFEN. [Concomitant]
     Active Substance: IBUPROFEN
  6. GINKGO BILOBA [Concomitant]
     Active Substance: GINKGO
  7. FISH OIL [Concomitant]
     Active Substance: FISH OIL

REACTIONS (4)
  - Alopecia [Unknown]
  - Arthralgia [Unknown]
  - Migraine [Unknown]
  - Multiple sclerosis [Unknown]
